FAERS Safety Report 5413209-5 (Version None)
Quarter: 2007Q3

REPORT INFORMATION
  Report Type: 
  Country: None (occurrence: None)
  Receive Date: 20070814
  Receipt Date: 20070806
  Transmission Date: 20080115
  Serious: Yes (Other)
  Sender: FDA-Public Use
  Company Number: PHEH2007US09907

PATIENT
  Age: 66 Year
  Sex: Female
  Weight: 62.358 kg

DRUGS (9)
  1. ENABLEX [Suspect]
     Indication: HYPERTONIC BLADDER
     Dates: start: 20070101, end: 20070704
  2. BENTYL [Concomitant]
     Indication: IRRITABLE BOWEL SYNDROME
     Dosage: 10 MG, TID
  3. ASACOL [Concomitant]
     Dosage: 1200 MG, BID
  4. PREVACID [Concomitant]
     Dosage: 30 MG, QD
  5. TRAMADOL HCL [Concomitant]
     Dosage: 50 MG, PRN
  6. FAMOTIDINE [Concomitant]
     Dosage: 40 MG, UNK
  7. AMLODIPINE [Concomitant]
  8. CHLORTHALIDONE [Concomitant]
  9. DIURETICS [Concomitant]
     Dates: start: 20070601

REACTIONS (14)
  - ABDOMINAL DISCOMFORT [None]
  - ABDOMINAL PAIN [None]
  - ADNEXA UTERI CYST [None]
  - ALANINE AMINOTRANSFERASE INCREASED [None]
  - ASPARTATE AMINOTRANSFERASE INCREASED [None]
  - BLOOD ALKALINE PHOSPHATASE INCREASED [None]
  - CHOLESTASIS [None]
  - DIARRHOEA [None]
  - DYSPNOEA [None]
  - FATIGUE [None]
  - GAMMA-GLUTAMYLTRANSFERASE INCREASED [None]
  - HYPERTENSION [None]
  - LIVER FUNCTION TEST ABNORMAL [None]
  - OEDEMA PERIPHERAL [None]
